FAERS Safety Report 5910117-8 (Version None)
Quarter: 2008Q4

REPORT INFORMATION
  Report Type: 
  Country: None (occurrence: None)
  Receive Date: 20081007
  Receipt Date: 20080509
  Transmission Date: 20090506
  Serious: No
  Sender: FDA-Public Use
  Company Number: US-ASTRAZENECA-2007UW22130

PATIENT
  Age: 60 Year
  Sex: Female
  Weight: 62.6 kg

DRUGS (5)
  1. ARIMIDEX [Suspect]
     Indication: BREAST CANCER
     Route: 048
     Dates: start: 20070917
  2. LIPITOR [Concomitant]
  3. ATENOLOL [Concomitant]
  4. ACIPHEX [Concomitant]
  5. FOLIC ACID [Concomitant]

REACTIONS (6)
  - AFFECTIVE DISORDER [None]
  - ARTHRALGIA [None]
  - BLOOD PRESSURE INCREASED [None]
  - BONE PAIN [None]
  - HOT FLUSH [None]
  - INSOMNIA [None]
